FAERS Safety Report 15145092 (Version 4)
Quarter: 2019Q4

REPORT INFORMATION
  Report Type: Spontaneous
  Country: US (occurrence: US)
  Receive Date: 20180713
  Receipt Date: 20191121
  Transmission Date: 20200122
  Serious: No
  Sender: FDA-Public Use
  Company Number: US-INTERCEPT-PMOCA2018000327

PATIENT
  Sex: Female
  Weight: 87.53 kg

DRUGS (10)
  1. CYCLOBENZAPRINE. [Concomitant]
     Active Substance: CYCLOBENZAPRINE
     Dosage: 10 MG, UNK
  2. CALCIUM [Concomitant]
     Active Substance: CALCIUM
     Dosage: 250-500 MG
  3. PEPCID [Concomitant]
     Active Substance: FAMOTIDINE
     Dosage: 20 MG, UNK
  4. NAPROXEN. [Concomitant]
     Active Substance: NAPROXEN
     Dosage: 250 MG, UNK
  5. URSODIOL. [Concomitant]
     Active Substance: URSODIOL
     Dosage: 250 MG, UNK
  6. MAGNESIUM [Concomitant]
     Active Substance: MAGNESIUM
     Dosage: 100 MG, UNK
  7. OCALIVA [Suspect]
     Active Substance: OBETICHOLIC ACID
     Indication: PRIMARY BILIARY CHOLANGITIS
     Dosage: 5 MG, QD
     Route: 048
     Dates: start: 20180220
  8. NEXIUM [Concomitant]
     Active Substance: ESOMEPRAZOLE MAGNESIUM
     Dosage: 20 MG, UNK
  9. ASPIRIN. [Concomitant]
     Active Substance: ASPIRIN
     Dosage: 81 MG, UNK
  10. BUDESONIDE. [Concomitant]
     Active Substance: BUDESONIDE
     Dosage: 1MG/2ML AMPUL-NEB

REACTIONS (6)
  - Pruritus [Unknown]
  - Rash [Unknown]
  - Blood pressure increased [Unknown]
  - Dry skin [Unknown]
  - Rehabilitation therapy [Unknown]
  - Contusion [Unknown]

NARRATIVE: CASE EVENT DATE: 2018
